FAERS Safety Report 13712142 (Version 1)
Quarter: 2017Q3

REPORT INFORMATION
  Report Type: Spontaneous
  Country: US (occurrence: US)
  Receive Date: 20170703
  Receipt Date: 20170703
  Transmission Date: 20171127
  Serious: No
  Sender: FDA-Public Use
  Company Number: US-JNJFOC-20170619221

PATIENT
  Age: 15 Year
  Sex: Male
  Weight: 74.84 kg

DRUGS (6)
  1. TOPAMAX [Suspect]
     Active Substance: TOPIRAMATE
     Indication: WEIGHT CONTROL
     Route: 048
     Dates: start: 20021118
  2. TOPAMAX [Suspect]
     Active Substance: TOPIRAMATE
     Indication: AFFECT LABILITY
     Route: 048
     Dates: start: 20021118
  3. TOPAMAX [Suspect]
     Active Substance: TOPIRAMATE
     Indication: AFFECT LABILITY
     Route: 048
     Dates: start: 20010613
  4. TOPAMAX [Suspect]
     Active Substance: TOPIRAMATE
     Indication: WEIGHT CONTROL
     Route: 048
  5. TOPAMAX [Suspect]
     Active Substance: TOPIRAMATE
     Indication: AFFECT LABILITY
     Route: 048
  6. TOPAMAX [Suspect]
     Active Substance: TOPIRAMATE
     Indication: WEIGHT CONTROL
     Route: 048
     Dates: start: 20010613

REACTIONS (2)
  - Product use in unapproved indication [Unknown]
  - Off label use [Unknown]

NARRATIVE: CASE EVENT DATE: 20010613
